FAERS Safety Report 9054776 (Version 1)
Quarter: 2013Q1

REPORT INFORMATION
  Report Type: Spontaneous
  Country: US (occurrence: US)
  Receive Date: 20130208
  Receipt Date: 20130208
  Transmission Date: 20140127
  Serious: Yes (Other)
  Sender: FDA-Public Use
  Company Number: US-SANOFI-AVENTIS-2013SA010650

PATIENT
  Age: 87 Year
  Sex: Female
  Weight: 65.77 kg

DRUGS (3)
  1. PLAVIX [Suspect]
     Route: 048
     Dates: start: 2007
  2. PLAVIX [Suspect]
     Dosage: 3 DOSES
     Route: 048
     Dates: start: 201205
  3. ALL OTHER THERAPEUTIC PRODUCTS [Concomitant]

REACTIONS (7)
  - Bronchitis [Recovered/Resolved]
  - Dysphonia [Recovered/Resolved]
  - Pulmonary congestion [Unknown]
  - Dyspnoea [Unknown]
  - Contusion [Unknown]
  - Osteoarthritis [Unknown]
  - Emotional distress [Unknown]
